FAERS Safety Report 8923832 (Version 1)
Quarter: 2012Q4

REPORT INFORMATION
  Report Type: 
  Country: US (occurrence: US)
  Receive Date: 20121126
  Receipt Date: 20121126
  Transmission Date: 20130627
  Serious: Yes (Other)
  Sender: FDA-Public Use
  Company Number: US-009507513-1211USA008466

PATIENT

DRUGS (1)
  1. FOSAMAX [Suspect]
     Dosage: UNK
     Route: 048
     Dates: start: 2003

REACTIONS (6)
  - Femur fracture [Unknown]
  - Oesophageal carcinoma [Unknown]
  - Osteonecrosis of jaw [Unknown]
  - Tooth loss [Unknown]
  - Weight decreased [Unknown]
  - Musculoskeletal pain [Unknown]
